FAERS Safety Report 9031031 (Version 1)
Quarter: 2013Q1

REPORT INFORMATION
  Report Type: Spontaneous
  Country: US (occurrence: US)
  Receive Date: 20130123
  Receipt Date: 20130123
  Transmission Date: 20140127
  Serious: Yes (Other)
  Sender: FDA-Public Use
  Company Number: US-SANOFI-AVENTIS-2013SA001921

PATIENT
  Age: 44 Year
  Sex: Female

DRUGS (10)
  1. PLAQUENIL [Suspect]
     Route: 065
     Dates: end: 2012
  2. SIMPONI [Suspect]
     Indication: RHEUMATOID ARTHRITIS
     Route: 058
     Dates: start: 2011
  3. TOPAMAX [Concomitant]
     Indication: MIGRAINE
  4. RESTASIS [Concomitant]
     Indication: DRY EYE
     Dates: start: 201203
  5. HYDROCODONE [Concomitant]
     Indication: PAIN
  6. FOLIC ACID [Concomitant]
  7. NEURONTIN [Concomitant]
     Indication: PAIN
  8. LORAZEPAM [Concomitant]
     Indication: ANXIETY
  9. ASPIRIN [Concomitant]
  10. SALBUTAMOL [Concomitant]
     Indication: ASTHMA

REACTIONS (6)
  - Depression [Unknown]
  - Rheumatoid arthritis [Unknown]
  - Dry eye [Unknown]
  - Anxiety [Unknown]
  - Malaise [Recovered/Resolved]
  - Nasopharyngitis [Recovered/Resolved]
